FAERS Safety Report 11051390 (Version 3)
Quarter: 2015Q2

REPORT INFORMATION
  Report Type: Spontaneous
  Country: US (occurrence: US)
  Receive Date: 20150421
  Receipt Date: 20150610
  Transmission Date: 20150821
  Serious: No
  Sender: FDA-Public Use
  Company Number: US-PFIZER INC-2015131950

PATIENT
  Age: 75 Year
  Sex: Female

DRUGS (3)
  1. LEVOFLOXACIN. [Concomitant]
     Active Substance: LEVOFLOXACIN
     Dosage: 500 MG, UNK
  2. ROBITUSSIN COUGH AND CHEST CONGESTION SUGAR FREE DM [Suspect]
     Active Substance: DEXTROMETHORPHAN HYDROBROMIDE\GUAIFENESIN
     Indication: COUGH
     Dosage: AS NEEDED (2 TSP 2-3 TIMES DAILY)
     Dates: start: 20150505, end: 20150510
  3. DILANTIN [Suspect]
     Active Substance: PHENYTOIN
     Dosage: UNK UNK, DAILY

REACTIONS (1)
  - Hypotension [Recovered/Resolved]

NARRATIVE: CASE EVENT DATE: 20150505
